FAERS Safety Report 9121094 (Version 1)
Quarter: 2013Q1

REPORT INFORMATION
  Report Type: Spontaneous
  Country: CN (occurrence: CN)
  Receive Date: 20130226
  Receipt Date: 20130226
  Transmission Date: 20140127
  Serious: Yes (Other)
  Sender: FDA-Public Use
  Company Number: CN-MYLANLABS-2013S1003805

PATIENT
  Age: 77 Year
  Sex: Male
  Weight: 58 kg

DRUGS (13)
  1. EDARAVONE [Suspect]
     Indication: CEREBRAL INFARCTION
     Dosage: RECEIVED A CUMULATIVE DOSE OF 180MG
     Route: 065
  2. MANNITOL [Interacting]
     Indication: CEREBRAL INFARCTION
     Route: 041
  3. MANNITOL [Interacting]
     Indication: CEREBRAL INFARCTION
     Dosage: 975ML OF 20%
     Route: 040
  4. FUROSEMIDE [Interacting]
     Indication: CEREBRAL INFARCTION
     Dosage: RECEIVED FUROSEMIDE REPEATEDLY FOR 3 DAYS AFTER HIS CEREBRAL INFARCTION
     Route: 040
  5. DICLOFENAC [Interacting]
     Indication: LUNG INFECTION
     Route: 054
  6. AMINOPHENAZONE CYCLAMATE [Interacting]
     Indication: LUNG INFECTION
     Route: 030
  7. PENTOBARBITAL [Concomitant]
     Indication: LUNG INFECTION
     Route: 030
  8. HUMULIN 70/30 [Concomitant]
     Indication: TYPE 2 DIABETES MELLITUS
     Route: 065
  9. XUE-SAITONG [Concomitant]
     Indication: CEREBRAL INFARCTION
     Route: 065
  10. OZAGREL [Concomitant]
     Indication: CEREBRAL INFARCTION
     Route: 065
  11. GLYCEROL [Concomitant]
     Indication: CEREBRAL INFARCTION
     Route: 040
  12. LEVOFLOXACIN [Concomitant]
     Indication: LUNG INFECTION
     Route: 040
  13. CEFOPERAZONE SODIUM/SULBACTAM SODIUM [Concomitant]
     Indication: LUNG INFECTION
     Route: 040

REACTIONS (2)
  - Renal failure acute [Recovered/Resolved]
  - Drug interaction [Recovered/Resolved]
